FAERS Safety Report 19433124 (Version 1)
Quarter: 2021Q2

REPORT INFORMATION
  Report Type: Spontaneous
  Country: US (occurrence: US)
  Receive Date: 20210617
  Receipt Date: 20210617
  Transmission Date: 20210717
  Serious: Yes (Hospitalization)
  Sender: FDA-Public Use
  Company Number: US-TEVA-2021-US-1922396

PATIENT
  Sex: Female

DRUGS (10)
  1. MEMANTINE. [Suspect]
     Active Substance: MEMANTINE
     Dosage: 15 MILLIGRAM DAILY; 10 MG IN THE MORNING AND 5 MG AT NIGHT.
     Route: 064
  2. PENICILLIN G [Suspect]
     Active Substance: PENICILLIN G
     Indication: DRUG THERAPY
     Route: 064
  3. MEMANTINE. [Suspect]
     Active Substance: MEMANTINE
     Dosage: 20 MILLIGRAM DAILY; DURING ECT
     Route: 064
  4. RISPERIDONE. [Suspect]
     Active Substance: RISPERIDONE
     Indication: DRUG THERAPY
     Dosage: 4 MILLIGRAM DAILY; 1MG IN MORNING AND 3MG AT BEDTIME
     Route: 064
  5. LORAZEPAM. [Suspect]
     Active Substance: LORAZEPAM
     Dosage: 2 MILLIGRAM DAILY; DURING ELECTROCONVULSIVE THERAPY
     Route: 064
  6. MEMANTINE. [Suspect]
     Active Substance: MEMANTINE
     Indication: DRUG THERAPY
     Dosage: 5 MILLIGRAM DAILY; STARTING DOSE; INCREASED AFTER IMPROVEMENT WAS AFTER 3 DAYS OF TREATMENT
     Route: 064
  7. LORAZEPAM. [Suspect]
     Active Substance: LORAZEPAM
     Dosage: 3 MILLIGRAM DAILY; 3 TIMES A DAY
     Route: 064
  8. FOLIC ACID. [Suspect]
     Active Substance: FOLIC ACID
     Indication: PRODUCT USED FOR UNKNOWN INDICATION
     Route: 064
  9. LORAZEPAM. [Suspect]
     Active Substance: LORAZEPAM
     Indication: DRUG THERAPY
     Dosage: 1 MILLIGRAM DAILY;
     Route: 064
  10. NITROFURANTOIN. [Suspect]
     Active Substance: NITROFURANTOIN
     Indication: DRUG THERAPY
     Route: 064

REACTIONS (5)
  - Retinopathy of prematurity [Recovering/Resolving]
  - Neonatal respiratory distress syndrome [Unknown]
  - Infantile apnoea [Recovered/Resolved]
  - Anaemia neonatal [Recovering/Resolving]
  - Foetal exposure during pregnancy [Unknown]
